FAERS Safety Report 5807761-5 (Version None)
Quarter: 2008Q3

REPORT INFORMATION
  Report Type: 
  Country: None (occurrence: None)
  Receive Date: 20080711
  Receipt Date: 20080125
  Transmission Date: 20090109
  Serious: Yes (Death)
  Sender: FDA-Public Use
  Company Number: US-ROCHE-543923

PATIENT
  Age: 46 Year
  Sex: Female

DRUGS (4)
  1. DIAZEPAM [Suspect]
     Indication: DRUG USE FOR UNKNOWN INDICATION
     Dosage: ROUTE REPORTED AS INGESTION.
     Route: 048
  2. AFONILUM [Suspect]
     Indication: DRUG USE FOR UNKNOWN INDICATION
     Dosage: DRUG REPORTED AS AMINPHYLLIN/THEOPHYLLINE. ROUTE REPORTED AS INGESTION.
     Route: 048
  3. METOPROLOL [Suspect]
     Indication: DRUG USE FOR UNKNOWN INDICATION
     Dosage: ROUTE REPORTED AS INGESTION.
     Route: 048
  4. QUETIAPINE FUMARATE [Suspect]
     Indication: DRUG USE FOR UNKNOWN INDICATION
     Dosage: ROUTE REPORTED AS INGESTION.
     Route: 048

REACTIONS (1)
  - COMPLETED SUICIDE [None]
